FAERS Safety Report 5992444-1 (Version None)
Quarter: 2008Q4

REPORT INFORMATION
  Report Type: 
  Country: None (occurrence: None)
  Receive Date: 20081211
  Receipt Date: 20080519
  Transmission Date: 20090506
  Serious: No
  Sender: FDA-Public Use
  Company Number: US-AMGEN-KDL280476

PATIENT
  Sex: Female

DRUGS (1)
  1. ENBREL [Suspect]
     Indication: RHEUMATOID ARTHRITIS
     Route: 058
     Dates: start: 20080330

REACTIONS (5)
  - BREAST MASS [None]
  - BREAST PAIN [None]
  - HEADACHE [None]
  - NAUSEA [None]
  - VOMITING [None]
